FAERS Safety Report 14105697 (Version 2)
Quarter: 2017Q4

REPORT INFORMATION
  Report Type: Spontaneous
  Country: GB (occurrence: GB)
  Receive Date: 20171018
  Receipt Date: 20171020
  Transmission Date: 20180321
  Serious: Yes (Other)
  Sender: FDA-Public Use
  Company Number: GB-009507513-1710GBR008840

PATIENT
  Age: 75 Year

DRUGS (5)
  1. DEXAMETHASONE. [Suspect]
     Active Substance: DEXAMETHASONE
     Indication: PLASMA CELL MYELOMA
     Dosage: 20 MG, ON UNKNOWN FREQUENCY; ON DAYS 1, 8, 15 AND 22 (20 MG)
     Route: 065
     Dates: start: 201606
  2. NINLARO [Suspect]
     Active Substance: IXAZOMIB CITRATE
     Indication: PLASMA CELL MYELOMA
     Dosage: 4MG, ON UNKNOWN FREQUENCY; ON DAYS 1, 8 AND 15 (4 MG)
     Route: 065
     Dates: start: 201606
  3. DEXAMETHASONE. [Suspect]
     Active Substance: DEXAMETHASONE
     Dosage: UNKNOWN
     Route: 065
  4. LENALIDOMIDE [Suspect]
     Active Substance: LENALIDOMIDE
     Indication: PLASMA CELL MYELOMA
     Dosage: 25MG, ON AN UNKNOWN FREQUENCY; FROM DAYS 1-21 (25MG)
     Route: 065
     Dates: start: 201606
  5. LENALIDOMIDE [Suspect]
     Active Substance: LENALIDOMIDE
     Dosage: 15 MG ON UNKNOWN FREQUENCY (IN CYCLE 2) (15 MG)
     Route: 065

REACTIONS (3)
  - Swelling [Unknown]
  - Plasma cell myeloma [Unknown]
  - Chest pain [Unknown]
